FAERS Safety Report 4728810-1 (Version None)
Quarter: 2005Q3

REPORT INFORMATION
  Report Type: 
  Country: None (occurrence: None)
  Receive Date: 20050729
  Receipt Date: 20050726
  Transmission Date: 20060218
  Serious: Yes (Hospitalization)
  Sender: FDA-Public Use
  Company Number: 2005SE04322

PATIENT
  Age: 13632 Day
  Sex: Female

DRUGS (13)
  1. BLOPRESS TABLETS 4 [Suspect]
     Indication: HYPERTENSION
     Route: 048
     Dates: start: 20050620
  2. BLOPRESS TABLETS 4 [Suspect]
     Route: 048
     Dates: start: 20050713, end: 20050713
  3. AMLODIN [Suspect]
     Indication: HYPERTENSION
     Route: 048
     Dates: start: 20050620
  4. AMLODIN [Suspect]
     Route: 048
     Dates: start: 20050713, end: 20050713
  5. BENZALIN [Suspect]
     Indication: DEPRESSION
     Dates: start: 20050101
  6. BENZALIN [Suspect]
     Dates: start: 20050713, end: 20050713
  7. LEVOTOMIN [Suspect]
     Indication: DEPRESSION
     Route: 048
     Dates: start: 20050101
  8. LEVOTOMIN [Suspect]
     Route: 048
     Dates: start: 20050713, end: 20050713
  9. TOLEDOMIN [Suspect]
     Indication: DEPRESSION
     Route: 048
     Dates: start: 20050101
  10. TOLEDOMIN [Suspect]
     Route: 048
     Dates: start: 20050713, end: 20050713
  11. LUVOX [Suspect]
     Indication: DEPRESSION
     Route: 048
     Dates: start: 20050101
  12. LUVOX [Suspect]
     Route: 048
     Dates: start: 20050713, end: 20050713
  13. MEILAX [Concomitant]
     Indication: DEPRESSION
     Route: 048
     Dates: start: 20050101

REACTIONS (3)
  - BLOOD PRESSURE DECREASED [None]
  - MULTIPLE DRUG OVERDOSE [None]
  - OVERDOSE [None]
